FAERS Safety Report 9913975 (Version 1)
Quarter: 2014Q1

REPORT INFORMATION
  Report Type: Spontaneous
  Country: US (occurrence: None)
  Receive Date: 20140219
  Receipt Date: 20140219
  Transmission Date: 20141002
  Serious: Yes (Disabling)
  Sender: FDA-Public Use
  Company Number: None

PATIENT
  Age: 54 Year
  Sex: Female
  Weight: 89.81 kg

DRUGS (1)
  1. HYDROCODONE [Suspect]
     Dosage: 5-325  1 PER DAY  ONCE DAILY  --

REACTIONS (5)
  - Arthralgia [None]
  - Drug effect decreased [None]
  - Product formulation issue [None]
  - Gastrointestinal haemorrhage [None]
  - Impaired work ability [None]
